FAERS Safety Report 17353877 (Version 1)
Quarter: 2020Q1

REPORT INFORMATION
  Report Type: Spontaneous
  Country: US (occurrence: US)
  Receive Date: 20200116
  Receipt Date: 20200116
  Transmission Date: 20200409
  Serious: Yes (Hospitalization)
  Sender: FDA-Public Use
  Company Number: None

PATIENT
  Sex: Female

DRUGS (11)
  1. OMEPRAZOLE. [Concomitant]
     Active Substance: OMEPRAZOLE
  2. GABAPENTIN. [Concomitant]
     Active Substance: GABAPENTIN
  3. AMLODIPINE [Concomitant]
     Active Substance: AMLODIPINE BESYLATE
  4. IBUPROFEN. [Concomitant]
     Active Substance: IBUPROFEN
  5. ORENCIA [Suspect]
     Active Substance: ABATACEPT
     Indication: RHEUMATOID ARTHRITIS
     Dosage: ?          OTHER FREQUENCY:Q7 DAYS;?
     Route: 058
     Dates: start: 20180207
  6. TORSEMIDE. [Concomitant]
     Active Substance: TORSEMIDE
  7. LEVOFLOXACIN. [Concomitant]
     Active Substance: LEVOFLOXACIN
  8. BUPROPION. [Concomitant]
     Active Substance: BUPROPION
  9. PREDNISONE. [Concomitant]
     Active Substance: PREDNISONE
  10. LISINOPRIL. [Concomitant]
     Active Substance: LISINOPRIL
  11. DOXYCYCL HYC 100 MG GENERIC FOR VIBRA TAB 100 MG [Concomitant]
     Active Substance: DOXYCYCLINE HYCLATE

REACTIONS (2)
  - Hospitalisation [None]
  - Therapy cessation [None]
